FAERS Safety Report 24165952 (Version 1)
Quarter: 2024Q3

REPORT INFORMATION
  Report Type: Spontaneous
  Country: US (occurrence: US)
  Receive Date: 20240802
  Receipt Date: 20240802
  Transmission Date: 20241016
  Serious: No
  Sender: MITSUBISHI TANABE PHARMA
  Company Number: US-MTPC-MTDA2024-0015631

PATIENT

DRUGS (4)
  1. RADICAVA ORS [Suspect]
     Active Substance: EDARAVONE
     Indication: Amyotrophic lateral sclerosis
     Dosage: UNK
     Route: 065
     Dates: start: 202405
  2. RADICAVA ORS [Suspect]
     Active Substance: EDARAVONE
     Indication: Amyotrophic lateral sclerosis
     Dosage: UNK
     Route: 065
     Dates: start: 202405
  3. RADICAVA ORS [Suspect]
     Active Substance: EDARAVONE
     Dosage: MAINTENANCE DOSING
     Route: 065
     Dates: start: 202406
  4. RADICAVA ORS [Suspect]
     Active Substance: EDARAVONE
     Dosage: MAINTENANCE DOSING
     Route: 065
     Dates: start: 202406

REACTIONS (3)
  - Asthenia [Unknown]
  - Lethargy [Unknown]
  - Dysania [Unknown]
